FAERS Safety Report 11143798 (Version 1)
Quarter: 2015Q2

REPORT INFORMATION
  Report Type: Spontaneous
  Country: US (occurrence: None)
  Receive Date: 20150527
  Receipt Date: 20150527
  Transmission Date: 20150821
  Serious: No
  Sender: FDA-Public Use
  Company Number: None

PATIENT
  Age: 80 Year
  Sex: Male

DRUGS (1)
  1. STIVARGA [Suspect]
     Active Substance: REGORAFENIB
     Indication: NEOPLASM MALIGNANT
     Dosage: STIVARGA 40MG 2 TABLETS DAILY FOR 3 WEEKS, 7 DAYS ORAL
     Route: 048
     Dates: start: 20150122

REACTIONS (7)
  - Blood pressure increased [None]
  - Epistaxis [None]
  - Dysphonia [None]
  - Pain [None]
  - Weight decreased [None]
  - Dry mouth [None]
  - Oral mucosal erythema [None]

NARRATIVE: CASE EVENT DATE: 20150122
